FAERS Safety Report 10910101 (Version 1)
Quarter: 2015Q1

REPORT INFORMATION
  Report Type: Spontaneous
  Country: US (occurrence: US)
  Receive Date: 20150312
  Receipt Date: 20150312
  Transmission Date: 20150721
  Serious: No
  Sender: FDA-Public Use
  Company Number: US-SA-2014SA143290

PATIENT
  Sex: Male

DRUGS (2)
  1. NASACORT ALLERGY 24HR [Suspect]
     Active Substance: TRIAMCINOLONE ACETONIDE
     Indication: NASAL DISORDER
     Dosage: STARTED 2.5 MONTHS AGO, FIRST WEEK HE WAS USING 2 SPRAYS IN EACH NOSTRIL DAILY.
     Route: 045
  2. NASACORT ALLERGY 24HR [Suspect]
     Active Substance: TRIAMCINOLONE ACETONIDE
     Indication: NASAL DISORDER
     Dosage: REDUCED TO ONE SPRAY IN EACH NOSTRIL DAILY
     Route: 045
     Dates: end: 20141015

REACTIONS (4)
  - Nasal congestion [Unknown]
  - Epistaxis [Unknown]
  - Dyspnoea [Unknown]
  - Nasal dryness [Unknown]
